FAERS Safety Report 9307489 (Version 3)
Quarter: 2013Q2

REPORT INFORMATION
  Report Type: Report from Study
  Country: CA (occurrence: CA)
  Receive Date: 20130524
  Receipt Date: 20130530
  Transmission Date: 20140414
  Serious: Yes (Other)
  Sender: FDA-Public Use
  Company Number: CA-ROCHE-1167633

PATIENT
  Sex: Female
  Weight: 59 kg

DRUGS (7)
  1. RITUXAN [Suspect]
     Indication: RHEUMATOID ARTHRITIS
     Dosage: DAY 1, 15
     Route: 042
     Dates: start: 20120326
  2. RITUXAN [Suspect]
     Route: 065
     Dates: start: 20121220
  3. PREDNISONE [Concomitant]
  4. SULFASALAZINE [Concomitant]
  5. DIPHENHYDRAMINE HCL [Concomitant]
     Indication: PREMEDICATION
     Route: 048
     Dates: start: 20120326
  6. ACETAMINOPHEN [Concomitant]
     Indication: PREMEDICATION
     Route: 048
     Dates: start: 20120326
  7. METHYLPREDNISOLONE [Concomitant]
     Indication: PREMEDICATION
     Route: 042
     Dates: start: 20120326

REACTIONS (2)
  - Joint injury [Not Recovered/Not Resolved]
  - Scab [Not Recovered/Not Resolved]
